FAERS Safety Report 11155087 (Version 7)
Quarter: 2015Q3

REPORT INFORMATION
  Report Type: Report from Study
  Country: BR (occurrence: BR)
  Receive Date: 20150602
  Receipt Date: 20150807
  Transmission Date: 20151125
  Serious: Yes (Other)
  Sender: FDA-Public Use
  Company Number: PHHY2015BR025990

PATIENT
  Sex: Female
  Weight: 83 kg

DRUGS (5)
  1. SANDOSTATIN LAR DEPOT [Suspect]
     Active Substance: OCTREOTIDE ACETATE
     Indication: PITUITARY TUMOUR
  2. PREMARIN [Concomitant]
     Active Substance: ESTROGENS, CONJUGATED
     Indication: HORMONE LEVEL ABNORMAL
     Dosage: ONCE EVERY 15 DAYS
     Route: 048
     Dates: start: 2013, end: 2014
  3. PREMARIN [Concomitant]
     Active Substance: ESTROGENS, CONJUGATED
     Indication: BLOOD OESTROGEN DECREASED
  4. CABERGOLINE. [Concomitant]
     Active Substance: CABERGOLINE
     Indication: HORMONE LEVEL ABNORMAL
     Dosage: BIW
     Route: 048
  5. SANDOSTATIN LAR DEPOT [Suspect]
     Active Substance: OCTREOTIDE ACETATE
     Indication: ACROMEGALY
     Dosage: 1 DF, QMO (REPORTED AS EVERY 28 DAYS)
     Route: 030
     Dates: start: 2008

REACTIONS (25)
  - Injection site nodule [Not Recovered/Not Resolved]
  - Needle issue [Unknown]
  - Posture abnormal [Unknown]
  - Swelling [Not Recovered/Not Resolved]
  - Postmenopausal haemorrhage [Recovered/Resolved]
  - Fatigue [Not Recovered/Not Resolved]
  - Injection site pain [Not Recovered/Not Resolved]
  - Body height decreased [Not Recovered/Not Resolved]
  - Arthralgia [Not Recovered/Not Resolved]
  - Wrong technique in product usage process [Unknown]
  - Injection site erythema [Not Recovered/Not Resolved]
  - Feeling abnormal [Unknown]
  - Overweight [Unknown]
  - Injection site haemorrhage [Not Recovered/Not Resolved]
  - Pain [Not Recovered/Not Resolved]
  - Breast enlargement [Recovering/Resolving]
  - Laceration [Unknown]
  - Suffocation feeling [Recovering/Resolving]
  - Fluid retention [Unknown]
  - Injection site infection [Recovered/Resolved]
  - Injection site haematoma [Not Recovered/Not Resolved]
  - Malaise [Unknown]
  - Weight increased [Recovering/Resolving]
  - Injection site bruising [Not Recovered/Not Resolved]
  - Nodule [Not Recovered/Not Resolved]

NARRATIVE: CASE EVENT DATE: 2012
